FAERS Safety Report 24329585 (Version 1)
Quarter: 2024Q3

REPORT INFORMATION
  Report Type: Spontaneous
  Country: US (occurrence: US)
  Receive Date: 20240917
  Receipt Date: 20240917
  Transmission Date: 20241017
  Serious: No
  Sender: UROGEN PHARMA
  Company Number: US-UROGEN PHARMA LTD.-2024-UGN-000109

PATIENT

DRUGS (10)
  1. JELMYTO [Suspect]
     Active Substance: MITOMYCIN
     Indication: Transitional cell cancer of the renal pelvis and ureter
     Dosage: UNK(INSTILLATION)
     Dates: start: 20240207, end: 20240207
  2. JELMYTO [Suspect]
     Active Substance: MITOMYCIN
     Dosage: UNK(INSTILLATION)
     Dates: start: 2024, end: 2024
  3. JELMYTO [Suspect]
     Active Substance: MITOMYCIN
     Dosage: UNK(INSTILLATION)
     Dates: start: 2024, end: 2024
  4. JELMYTO [Suspect]
     Active Substance: MITOMYCIN
     Dosage: UNK(INSTILLATION)
     Dates: start: 2024, end: 2024
  5. JELMYTO [Suspect]
     Active Substance: MITOMYCIN
     Dosage: UNK(INSTILLATION)
     Dates: start: 2024, end: 2024
  6. JELMYTO [Suspect]
     Active Substance: MITOMYCIN
     Dosage: UNK(INSTILLATION)
     Dates: start: 20240320, end: 20240320
  7. JELMYTO [Suspect]
     Active Substance: MITOMYCIN
     Dosage: 32 MILLIGRAM(INSTILLATION) MAINTAINCE DOSE
     Dates: start: 20240724, end: 20240724
  8. PAROXETINE [Concomitant]
     Active Substance: PAROXETINE
     Indication: Product used for unknown indication
     Dosage: UNK
     Route: 065
  9. TAMSULOSIN [Concomitant]
     Active Substance: TAMSULOSIN
     Indication: Product used for unknown indication
     Dosage: UNK
     Route: 065
  10. CETIRIZINE HYDROCHLORIDE [Concomitant]
     Active Substance: CETIRIZINE HYDROCHLORIDE
     Indication: Product used for unknown indication
     Dosage: UNK
     Route: 065

REACTIONS (1)
  - Ureteral disorder [Not Recovered/Not Resolved]
